FAERS Safety Report 21088402 (Version 1)
Quarter: 2022Q3

REPORT INFORMATION
  Report Type: Spontaneous
  Country: US (occurrence: US)
  Receive Date: 20220715
  Receipt Date: 20220715
  Transmission Date: 20221026
  Serious: No
  Sender: FDA-Public Use
  Company Number: US-BAYER-2022A096695

PATIENT
  Age: 64 Year
  Sex: Female

DRUGS (1)
  1. MIRALAX [Suspect]
     Active Substance: POLYETHYLENE GLYCOL 3350
     Indication: Muscular dystrophy
     Dosage: UNK
     Route: 048

REACTIONS (3)
  - Incorrect product administration duration [Recovered/Resolved]
  - Product use in unapproved indication [Recovered/Resolved]
  - Product packaging issue [None]
